FAERS Safety Report 6007645-6 (Version None)
Quarter: 2008Q4

REPORT INFORMATION
  Report Type: 
  Country: None (occurrence: None)
  Receive Date: 20081217
  Receipt Date: 20080327
  Transmission Date: 20090506
  Serious: No
  Sender: FDA-Public Use
  Company Number: US-ASTRAZENECA-2008UW06141

PATIENT
  Sex: Male

DRUGS (2)
  1. CRESTOR [Suspect]
     Indication: HYPERCHOLESTEROLAEMIA
     Route: 048
     Dates: start: 20080201
  2. ZOCOR [Concomitant]
     Route: 048

REACTIONS (4)
  - GENITAL BURNING SENSATION [None]
  - GENITAL PAIN [None]
  - POLLAKIURIA [None]
  - TESTICULAR PAIN [None]
